FAERS Safety Report 5919492-1 (Version None)
Quarter: 2008Q4

REPORT INFORMATION
  Report Type: 
  Country: None (occurrence: None)
  Receive Date: 20081014
  Receipt Date: 20081014
  Transmission Date: 20090506
  Serious: No
  Sender: FDA-Public Use
  Company Number: None

PATIENT
  Age: 57 Year
  Sex: Male
  Weight: 99.7913 kg

DRUGS (1)
  1. SIMVASTATIN 50 MG [Suspect]
     Indication: BLOOD CHOLESTEROL INCREASED
     Dosage: 50 MG DAILY PO
     Route: 048
     Dates: start: 20080501, end: 20080901

REACTIONS (4)
  - BALANCE DISORDER [None]
  - HYPOAESTHESIA [None]
  - MUSCULAR WEAKNESS [None]
  - PARAESTHESIA [None]
